FAERS Safety Report 14402247 (Version 2)
Quarter: 2018Q1

REPORT INFORMATION
  Report Type: Spontaneous
  Country: IT (occurrence: IT)
  Receive Date: 20180117
  Receipt Date: 20180123
  Transmission Date: 20180509
  Serious: Yes (Life-Threatening, Hospitalization)
  Sender: FDA-Public Use
  Company Number: IT-DRREDDYS-GER/ITL/18/0095703

PATIENT
  Age: 67 Year
  Sex: Male

DRUGS (9)
  1. ALTEPLASE. [Concomitant]
     Active Substance: ALTEPLASE
     Indication: FIBRINOLYSIS
  2. ACETYLSALICYLIC ACID [Concomitant]
     Active Substance: ASPIRIN
     Indication: ANTICOAGULANT THERAPY
  3. WARFARIN SODIUM. [Suspect]
     Active Substance: WARFARIN SODIUM
     Indication: ANTICOAGULANT THERAPY
     Dates: start: 20140401
  4. ACETYLSALICYLIC ACID [Suspect]
     Active Substance: ASPIRIN
     Indication: ANTICOAGULANT THERAPY
  5. WARFARIN [Concomitant]
     Active Substance: WARFARIN
     Indication: ANTICOAGULANT THERAPY
  6. ACETYLSALICYLIC ACID [Concomitant]
     Active Substance: ASPIRIN
  7. DIPYRIDAMOLE. [Concomitant]
     Active Substance: DIPYRIDAMOLE
     Indication: ANTICOAGULANT THERAPY
  8. CLOPIDOGREL [Suspect]
     Active Substance: CLOPIDOGREL BISULFATE
     Indication: ANTICOAGULANT THERAPY
     Dates: start: 20141201, end: 20150401
  9. TICAGRELOR. [Concomitant]
     Active Substance: TICAGRELOR
     Indication: ANTICOAGULANT THERAPY

REACTIONS (6)
  - Headache [Unknown]
  - Haemorrhage intracranial [Unknown]
  - Embolic stroke [Unknown]
  - Therapeutic response decreased [Unknown]
  - Haematuria [Unknown]
  - Cardiac ventricular thrombosis [Unknown]
